FAERS Safety Report 17649431 (Version 1)
Quarter: 2020Q2

REPORT INFORMATION
  Report Type: Spontaneous
  Country: DE (occurrence: DE)
  Receive Date: 20200409
  Receipt Date: 20200409
  Transmission Date: 20200713
  Serious: Yes (Hospitalization)
  Sender: FDA-Public Use
  Company Number: DE-TEVA-2020-DE-1221595

PATIENT
  Age: 63 Year
  Sex: Male

DRUGS (7)
  1. TRAMADOL. [Suspect]
     Active Substance: TRAMADOL
     Dosage: 100 MILLIGRAM DAILY; 50 MG, 1-0-1-0
  2. METOPROLOL. [Suspect]
     Active Substance: METOPROLOL
     Dosage: 47.5 MG, 1-0-0.5-0
     Route: 065
  3. VOCADO HCT 40MG/5MG/12,5MG [Suspect]
     Active Substance: AMLODIPINE BESYLATE\HYDROCHLOROTHIAZIDE\OLMESARTAN MEDOXOMIL
     Dosage: 5|12.5|40 MG, 1-0-0-0
     Route: 065
  4. ATORVASTATIN [Concomitant]
     Active Substance: ATORVASTATIN
     Dosage: 40 MILLIGRAM DAILY; 40 MG, 0-0-1-0
  5. METAMIZOL [Suspect]
     Active Substance: METAMIZOLE SODIUM
     Dosage: 2000 MILLIGRAM DAILY; 500 MG, 1-1-1-1
     Route: 065
  6. ACETYLSALICYLSAURE [Concomitant]
     Active Substance: ASPIRIN
     Dosage: 100 MILLIGRAM DAILY; 100 MG, 1-0-0-0
  7. BRETARIS GENUAIR 322MIKROGRAMM [Concomitant]
     Dosage: 686.78 MICROGRAM DAILY; 343.39 UG, 1-0-1-0

REACTIONS (3)
  - General physical health deterioration [Unknown]
  - Syncope [Unknown]
  - Dizziness [Unknown]
